FAERS Safety Report 4842946-6 (Version None)
Quarter: 2005Q4

REPORT INFORMATION
  Report Type: 
  Country: None (occurrence: None)
  Receive Date: 20051130
  Receipt Date: 20051124
  Transmission Date: 20060501
  Serious: No
  Sender: FDA-Public Use
  Company Number: DE-2005-023341

PATIENT
  Age: 63 Year
  Sex: Female
  Weight: 70 kg

DRUGS (2)
  1. ANGELIQ [Suspect]
     Indication: MENOPAUSAL SYMPTOMS
     Dosage: ORAL
     Route: 048
     Dates: start: 20041124, end: 20051101
  2. ASPIRIN [Concomitant]

REACTIONS (1)
  - HYPOSMIA [None]
